FAERS Safety Report 19273958 (Version 2)
Quarter: 2021Q2

REPORT INFORMATION
  Report Type: Spontaneous
  Country: GB (occurrence: GB)
  Receive Date: 20210519
  Receipt Date: 20210629
  Transmission Date: 20210717
  Serious: Yes (Death)
  Sender: FDA-Public Use
  Company Number: GB-MYLANLABS-2021M1028163

PATIENT
  Age: 68 Year
  Sex: Female

DRUGS (1)
  1. AMIODARONE [Suspect]
     Active Substance: AMIODARONE
     Indication: ATRIAL FIBRILLATION
     Dosage: 100 MILLIGRAM, QD,PATIENT DIED IN 2019
     Route: 065
     Dates: start: 201003

REACTIONS (2)
  - Respiratory failure [Fatal]
  - Acute interstitial pneumonitis [Fatal]

NARRATIVE: CASE EVENT DATE: 2019
